FAERS Safety Report 7275627-2 (Version None)
Quarter: 2011Q1

REPORT INFORMATION
  Report Type: 
  Country: None (occurrence: None)
  Receive Date: 20110131
  Receipt Date: 20110114
  Transmission Date: 20110831
  Serious: Yes (Other)
  Sender: FDA-Public Use
  Company Number: 022440

PATIENT
  Age: 6 Year
  Sex: Male
  Weight: 22.2 kg

DRUGS (2)
  1. METHYLPHENIDATE HCL [Suspect]
     Indication: ATTENTION DEFICIT/HYPERACTIVITY DISORDER
     Dosage: (ORAL)
     Route: 048
     Dates: start: 20101012, end: 20101019
  2. METHYLPHENIDATE HCL [Suspect]
     Indication: ATTENTION DEFICIT/HYPERACTIVITY DISORDER
     Dosage: (ORAL)
     Route: 048
     Dates: start: 20101020, end: 20101105

REACTIONS (7)
  - FEAR OF DISEASE [None]
  - FORMICATION [None]
  - SCRATCH [None]
  - EMOTIONAL DISTRESS [None]
  - PRURITUS [None]
  - CRYING [None]
  - ANXIETY [None]
